FAERS Safety Report 21845324 (Version 1)
Quarter: 2023Q1

REPORT INFORMATION
  Report Type: Other
  Country: CN (occurrence: None)
  Receive Date: 20230111
  Receipt Date: 20230111
  Transmission Date: 20230417
  Serious: Yes (Other)
  Sender: FDA-Public Use
  Company Number: CN-ROCHE-3257470

PATIENT
  Age: 65 Year
  Sex: Male

DRUGS (9)
  1. CAPECITABINE [Suspect]
     Active Substance: CAPECITABINE
     Indication: Colorectal cancer metastatic
     Dosage: 1ST CYCLE: ON DAY 1-14 AND EVERY 21 DAYS
     Route: 048
     Dates: start: 20180831
  2. CAPECITABINE [Suspect]
     Active Substance: CAPECITABINE
     Dosage: FIRST-LINE TREATMENT  INITIATED
     Route: 048
     Dates: start: 20180926
  3. OXALIPLATIN [Suspect]
     Active Substance: OXALIPLATIN
     Indication: Colorectal cancer metastatic
     Dosage: 1 CYCLE : ON DAY 1 IVGTT FIRST-LINE TREATMENT
     Route: 042
     Dates: start: 20180831
  4. CETUXIMAB [Suspect]
     Active Substance: CETUXIMAB
     Indication: Colorectal cancer metastatic
     Dosage: FIRST-LINE TREATMENT
     Route: 065
  5. IRINOTECAN [Concomitant]
     Active Substance: IRINOTECAN
     Indication: Colorectal cancer metastatic
     Dates: start: 20200702
  6. CATEQUENTINIB [Concomitant]
     Active Substance: CATEQUENTINIB
     Indication: Colorectal cancer metastatic
     Route: 048
     Dates: start: 20201210
  7. CATEQUENTINIB [Concomitant]
     Active Substance: CATEQUENTINIB
     Dosage: ON DAY 1-14; EVERY 12 DAY; ON 17/MAR/2021, 28/APR/2021, 09/JUN/2021, AND 12/JUL/2021, ANLOTINIB + TA
     Route: 048
     Dates: start: 202012
  8. TIPIRACIL HYDROCHLORIDE\TRIFLURIDINE [Concomitant]
     Active Substance: TIPIRACIL HYDROCHLORIDE\TRIFLURIDINE
     Dates: start: 20201210
  9. TIPIRACIL HYDROCHLORIDE\TRIFLURIDINE [Concomitant]
     Active Substance: TIPIRACIL HYDROCHLORIDE\TRIFLURIDINE
     Dosage: ON DAY 1-5, ON DAY 8-12 BID; EVERY 28 DAYS; ON 17/MAR/2021, 28/APR/2021, 09/JUN/2021, AND 12/JUL/202
     Route: 048
     Dates: start: 202012

REACTIONS (1)
  - Disease progression [Recovering/Resolving]
